FAERS Safety Report 14021911 (Version 1)
Quarter: 2017Q3

REPORT INFORMATION
  Report Type: Spontaneous
  Country: US (occurrence: US)
  Receive Date: 20170928
  Receipt Date: 20170928
  Transmission Date: 20171128
  Serious: Yes (Other)
  Sender: FDA-Public Use
  Company Number: None

PATIENT
  Age: 47 Year
  Sex: Female
  Weight: 87.75 kg

DRUGS (2)
  1. VITAMIN B12 [Concomitant]
     Active Substance: CYANOCOBALAMIN
  2. ZOFRAN ODT [Suspect]
     Active Substance: ONDANSETRON HYDROCHLORIDE
     Indication: PROPHYLAXIS OF NAUSEA AND VOMITING
     Dosage: OTHER FREQUENCY:BEFORE SURGERY;?SUBLINGUAL
     Route: 060
     Dates: start: 20170907, end: 20170907

REACTIONS (2)
  - Glossodynia [None]
  - Blister [None]

NARRATIVE: CASE EVENT DATE: 20170907
